FAERS Safety Report 8463116-9 (Version None)
Quarter: 2012Q2

REPORT INFORMATION
  Report Type: 
  Country: None (occurrence: None)
  Receive Date: 20120625
  Receipt Date: 20120615
  Transmission Date: 20120825
  Serious: No
  Sender: FDA-Public Use
  Company Number: US-PFIZER INC-2012144965

PATIENT
  Sex: Female

DRUGS (1)
  1. ATORVASTATIN CALCIUM [Suspect]
     Dosage: 40 MG, UNK

REACTIONS (7)
  - MALAISE [None]
  - ASTHENIA [None]
  - CHILLS [None]
  - FEELING ABNORMAL [None]
  - FATIGUE [None]
  - DIZZINESS [None]
  - DEPRESSION [None]
